FAERS Safety Report 20814573 (Version 1)
Quarter: 2022Q2

REPORT INFORMATION
  Report Type: Spontaneous
  Country: FR (occurrence: FR)
  Receive Date: 20220511
  Receipt Date: 20220511
  Transmission Date: 20220720
  Serious: Yes (Other)
  Sender: FDA-Public Use
  Company Number: None

PATIENT
  Age: 39 Year
  Sex: Female
  Weight: 82 kg

DRUGS (3)
  1. EBASTINE [Suspect]
     Active Substance: EBASTINE
     Indication: Erythema
     Dosage: 5 MILLIGRAM, Q12H
     Route: 048
     Dates: start: 20220316, end: 20220406
  2. SINGULAIR [Suspect]
     Active Substance: MONTELUKAST SODIUM
     Indication: Product used for unknown indication
     Dosage: 10 MILLIGRAM, QD
     Route: 048
     Dates: start: 20220316, end: 20220406
  3. ZADITEN [Suspect]
     Active Substance: KETOTIFEN FUMARATE
     Indication: Erythema
     Dosage: 2 MILLIGRAM, QD
     Route: 048
     Dates: start: 20220316, end: 20220406

REACTIONS (2)
  - Erythema [Not Recovered/Not Resolved]
  - Condition aggravated [Not Recovered/Not Resolved]

NARRATIVE: CASE EVENT DATE: 20220319
